FAERS Safety Report 13304459 (Version 1)
Quarter: 2017Q1

REPORT INFORMATION
  Report Type: Spontaneous
  Country: FR (occurrence: FR)
  Receive Date: 20170308
  Receipt Date: 20170308
  Transmission Date: 20170428
  Serious: Yes (Death, Hospitalization, Other)
  Sender: FDA-Public Use
  Company Number: FR-ACCORD-048755

PATIENT
  Age: 63 Year
  Sex: Male

DRUGS (2)
  1. GEMCITABINE/GEMCITABINE HYDROCHLORIDE [Suspect]
     Active Substance: GEMCITABINE\GEMCITABINE HYDROCHLORIDE
     Indication: NON-SMALL CELL LUNG CANCER METASTATIC
     Dosage: EVERY 3 WEEKS FOR 3 CYCLE?1250 MG/M^2 FOLLOWED BY 7 CYCLES OF 1000 MG/M^2 DAY 1 AND DAY 8
  2. CARBOPLATIN. [Concomitant]
     Active Substance: CARBOPLATIN
     Indication: NON-SMALL CELL LUNG CANCER METASTATIC
     Dosage: AREA UNDER THE CURVE, 5, EVERY 3 WEEKS FOR 3 CYCLES

REACTIONS (2)
  - Haemolytic uraemic syndrome [None]
  - Thrombotic microangiopathy [Fatal]
